FAERS Safety Report 22150921 (Version 1)
Quarter: 2023Q1

REPORT INFORMATION
  Report Type: Spontaneous
  Country: US (occurrence: US)
  Receive Date: 20230329
  Receipt Date: 20230329
  Transmission Date: 20230417
  Serious: Yes (Other)
  Sender: FDA-Public Use
  Company Number: US-BRISTOL-MYERS SQUIBB COMPANY-2023-043009

PATIENT
  Sex: Female

DRUGS (2)
  1. ORENCIA [Suspect]
     Active Substance: ABATACEPT
     Indication: Myasthenia gravis
     Dosage: DOSE: UNKNOWN; FREQ: UNKNOWN.
  2. ORENCIA [Suspect]
     Active Substance: ABATACEPT
     Indication: Arthritis

REACTIONS (2)
  - Blood disorder [Unknown]
  - Off label use [Unknown]
